FAERS Safety Report 8801195 (Version 1)
Quarter: 2012Q4

REPORT INFORMATION
  Report Type: 
  Country: JP (occurrence: JP)
  Receive Date: 20120921
  Receipt Date: 20120921
  Transmission Date: 20130627
  Serious: Yes (Other)
  Sender: FDA-Public Use
  Company Number: JP-ROXANE LABORATORIES, INC.-2012-RO-01858RO

PATIENT
  Age: 86 Year
  Sex: Female
  Weight: 40 kg

DRUGS (5)
  1. LOSARTAN POTASSIUM USP [Suspect]
  2. DIGOXIN [Suspect]
  3. FUROSEMIDE [Suspect]
  4. WARFARIN [Suspect]
  5. CARVEDILOL [Suspect]

REACTIONS (1)
  - Atrioventricular block complete [Unknown]
